FAERS Safety Report 11276000 (Version 1)
Quarter: 2015Q2

REPORT INFORMATION
  Report Type: Spontaneous
  Country: US (occurrence: None)
  Receive Date: 20150625
  Receipt Date: 20150625
  Transmission Date: 20150821
  Serious: No
  Sender: FDA-Public Use
  Company Number: A-NJ2015-113386

PATIENT
  Age: 40 Year
  Sex: Female

DRUGS (3)
  1. OPSUMIT [Suspect]
     Active Substance: MACITENTAN
     Indication: PULMONARY ARTERIAL HYPERTENSION
     Route: 048
     Dates: start: 20140408
  2. VELETRI [Suspect]
     Active Substance: EPOPROSTENOL
     Indication: PULMONARY ARTERIAL HYPERTENSION
     Dosage: 30 NG/KG, PER MIN, INTRAVENOUS
     Route: 042
     Dates: start: 20150203
  3. REVATIO (SILDENAFIL CITRATE) [Concomitant]

REACTIONS (12)
  - Diarrhoea [None]
  - Pain in jaw [None]
  - Vomiting [None]
  - Dyspepsia [None]
  - Cardiac murmur [None]
  - Productive cough [None]
  - Decreased appetite [None]
  - Jugular vein distension [None]
  - Fatigue [None]
  - Pain in extremity [None]
  - Wheezing [None]
  - Nausea [None]
